FAERS Safety Report 8443973-2 (Version None)
Quarter: 2012Q2

REPORT INFORMATION
  Report Type: 
  Country: None (occurrence: None)
  Receive Date: 20120618
  Receipt Date: 20120611
  Transmission Date: 20120825
  Serious: Yes (Other)
  Sender: FDA-Public Use
  Company Number: PHHY2011CA73994

PATIENT
  Sex: Female

DRUGS (6)
  1. PERCOCET [Concomitant]
  2. SANDOSTATIN [Suspect]
     Indication: SHORT-BOWEL SYNDROME
     Dosage: UNK
     Route: 058
  3. SANDOSTATIN LAR [Suspect]
     Indication: SHORT-BOWEL SYNDROME
     Dosage: 30 MG EVERY 3 WEEKS
     Route: 030
     Dates: start: 20090101
  4. OMEPRAZOLE (PRISOLEC) [Concomitant]
  5. VITAMIN B-12 [Concomitant]
  6. CELEBREX [Concomitant]

REACTIONS (1)
  - VULVAL CANCER STAGE I [None]
